FAERS Safety Report 7786776-4 (Version None)
Quarter: 2011Q3

REPORT INFORMATION
  Report Type: 
  Country: None (occurrence: None)
  Receive Date: 20110929
  Receipt Date: 20110926
  Transmission Date: 20111222
  Serious: Yes (Hospitalization, Other)
  Sender: FDA-Public Use
  Company Number: FR-PFIZER INC-2011227895

PATIENT
  Age: 48 Year
  Sex: Female

DRUGS (3)
  1. TRAMADOL HCL [Suspect]
     Dosage: 3150 MG, SINGLE
     Route: 048
     Dates: start: 20110901, end: 20110901
  2. IDARAC [Suspect]
     Dosage: 4000 MG, SINGLE
     Route: 048
     Dates: start: 20110901, end: 20110901
  3. LYRICA [Suspect]
     Dosage: UNK
     Route: 048
     Dates: start: 20110901, end: 20110901

REACTIONS (2)
  - CONVULSION [None]
  - POISONING DELIBERATE [None]
